FAERS Safety Report 9032269 (Version 1)
Quarter: 2013Q1

REPORT INFORMATION
  Report Type: Report from Study
  Country: CA (occurrence: CA)
  Receive Date: 20130122
  Receipt Date: 20130122
  Transmission Date: 20140127
  Serious: Yes (Hospitalization)
  Sender: FDA-Public Use
  Company Number: CA-JNJFOC-20121106111

PATIENT
  Age: 22 None
  Sex: Female
  Weight: 62.7 kg

DRUGS (5)
  1. REMICADE [Suspect]
     Indication: CROHN^S DISEASE
     Dosage: 28TH INFUISON.
     Route: 042
     Dates: start: 20120908
  2. REMICADE [Suspect]
     Indication: CROHN^S DISEASE
     Route: 042
     Dates: start: 20080709
  3. REMICADE [Suspect]
     Indication: CROHN^S DISEASE
     Dosage: 29TH INFUSION
     Route: 042
     Dates: start: 20121107
  4. BIRTH CONTROL PILL [Concomitant]
     Route: 065
  5. PROBIOTICS [Concomitant]
     Route: 065

REACTIONS (3)
  - Post procedural haemorrhage [Recovered/Resolved]
  - Procedural pain [Recovered/Resolved]
  - Tonsillitis [Recovered/Resolved]
